FAERS Safety Report 4426969-7 (Version None)
Quarter: 2004Q3

REPORT INFORMATION
  Report Type: 
  Country: None (occurrence: None)
  Receive Date: 20040726
  Receipt Date: 20040420
  Transmission Date: 20050211
  Serious: No
  Sender: FDA-Public Use
  Company Number: USA040465508

PATIENT
  Age: 66 Year
  Sex: Female

DRUGS (7)
  1. FORTEO [Suspect]
     Indication: OSTEOPOROSIS
     Dosage: 20 UG DAY
     Dates: start: 20040419
  2. NORVASC [Concomitant]
  3. GALENIC / BISOPROLOL / HYDROCHLOROTHIAZIDE / [Concomitant]
  4. CALCIUM [Concomitant]
  5. VITAMIN B COMPLEX CAP [Concomitant]
  6. ASPIRIN [Concomitant]
  7. RED YEAST (RED YEAST RICE) [Concomitant]

REACTIONS (1)
  - BACK PAIN [None]
